FAERS Safety Report 13042975 (Version 1)
Quarter: 2016Q4

REPORT INFORMATION
  Report Type: Spontaneous
  Country: US (occurrence: US)
  Receive Date: 20161219
  Receipt Date: 20161219
  Transmission Date: 20170207
  Serious: No
  Sender: FDA-Public Use
  Company Number: US-ACTELION-A-US2016-147186

PATIENT
  Age: 57 Year
  Sex: Female

DRUGS (1)
  1. VALCHLOR [Suspect]
     Active Substance: MECHLORETHAMINE
     Indication: MYCOSIS FUNGOIDES
     Dosage: UNK, THIN FILM TO AFFECTED AREA THREE TIMES A WEEK
     Route: 061
     Dates: start: 20160818

REACTIONS (1)
  - Therapy non-responder [Unknown]
